FAERS Safety Report 5715683-3 (Version None)
Quarter: 2008Q2

REPORT INFORMATION
  Report Type: 
  Country: None (occurrence: None)
  Receive Date: 20080423
  Receipt Date: 20080423
  Transmission Date: 20081010
  Serious: Yes (Death)
  Sender: FDA-Public Use
  Company Number: None

PATIENT
  Sex: Male
  Weight: 47.6277 kg

DRUGS (1)
  1. RISPERDAL [Suspect]
     Indication: AGITATION
     Dosage: 1/2 TABLET 1 X/DAY PO
     Route: 048
     Dates: start: 19980712, end: 20040402

REACTIONS (3)
  - DYSPHAGIA [None]
  - MUSCULOSKELETAL DISORDER [None]
  - OFF LABEL USE [None]
